FAERS Safety Report 8281811-1 (Version None)
Quarter: 2012Q2

REPORT INFORMATION
  Report Type: 
  Country: None (occurrence: None)
  Receive Date: 20120413
  Receipt Date: 20120402
  Transmission Date: 20120825
  Serious: Yes (Other)
  Sender: FDA-Public Use
  Company Number: GR-JNJFOC-20120401700

PATIENT

DRUGS (1)
  1. INFLIXIMAB, RECOMBINANT [Suspect]
     Indication: RHEUMATOID ARTHRITIS
     Dosage: INITIALLY, ALL PATIENTS TREATED AT WEEKS 0,2, 6 AND EVERY 8 WEEKS THEREAFTER
     Route: 042

REACTIONS (8)
  - NEOPLASM MALIGNANT [None]
  - DRUG INEFFECTIVE [None]
  - PULMONARY TUBERCULOSIS [None]
  - TYPE I HYPERSENSITIVITY [None]
  - HYPERSENSITIVITY [None]
  - SPONDYLITIS [None]
  - INFUSION RELATED REACTION [None]
  - INFECTION [None]
